FAERS Safety Report 8499328-8 (Version None)
Quarter: 2012Q3

REPORT INFORMATION
  Report Type: 
  Country: None (occurrence: None)
  Receive Date: 20120710
  Receipt Date: 20120706
  Transmission Date: 20120928
  Serious: Yes (Death, Other)
  Sender: FDA-Public Use
  Company Number: PHEH2012US011929

PATIENT
  Sex: Male

DRUGS (14)
  1. METOPROLOL [Concomitant]
     Dosage: UNK UKN, UNK
  2. AZATHIOPRINE [Concomitant]
     Dosage: UNK UKN, UNK
  3. ENALAPRIL MALEATE [Concomitant]
     Dosage: UNK UKN, UNK
  4. LANTUS [Concomitant]
     Dosage: UNK UKN, UNK
  5. SIMVASTATIN [Concomitant]
     Dosage: UNK UKN, UNK
  6. AMLODIPINE [Concomitant]
     Dosage: UNK UKN, UNK
  7. GLIMEPIRIDE [Concomitant]
     Dosage: UNK UKN, UNK
  8. NEVANAC [Concomitant]
     Dosage: UNK UKN, UNK
  9. ISOSORBIDE MONONITRATE [Concomitant]
     Dosage: UNK UKN, UNK
  10. NITROGLYCERIN [Concomitant]
     Dosage: UNK UKN, UNK
  11. HUMALOG [Concomitant]
     Dosage: UNK UKN, UNK
  12. ASPIRIN [Concomitant]
     Dosage: UNK UKN, UNK
  13. EXELON [Suspect]
     Indication: COGNITIVE DISORDER
     Dosage: 4.6 MG, DAILY
     Route: 062
  14. PLAVIX [Concomitant]
     Dosage: UNK UKN, UNK

REACTIONS (6)
  - CEREBROVASCULAR ACCIDENT [None]
  - DEVICE RELATED INFECTION [None]
  - DIABETES MELLITUS [None]
  - DEATH [None]
  - MYOCARDIAL INFARCTION [None]
  - CATARACT [None]
